FAERS Safety Report 18087204 (Version 6)
Quarter: 2022Q2

REPORT INFORMATION
  Report Type: Other
  Country: DE (occurrence: None)
  Receive Date: 20200729
  Receipt Date: 20220409
  Transmission Date: 20220721
  Serious: Yes (Hospitalization)
  Sender: FDA-Public Use
  Company Number: DE-ROCHE-2459047

PATIENT
  Age: 33 Year
  Sex: Female

DRUGS (12)
  1. OCREVUS [Suspect]
     Active Substance: OCRELIZUMAB
     Indication: Relapsing-remitting multiple sclerosis
     Route: 042
     Dates: start: 20191014
  2. OCREVUS [Suspect]
     Active Substance: OCRELIZUMAB
     Route: 042
     Dates: start: 20191028
  3. OCREVUS [Suspect]
     Active Substance: OCRELIZUMAB
     Route: 042
     Dates: start: 20200406
  4. CORTISONE [Suspect]
     Active Substance: CORTISONE
     Indication: Premedication
     Route: 065
  5. CORTISONE [Suspect]
     Active Substance: CORTISONE
     Route: 065
     Dates: start: 20200406
  6. FINGOLIMOD [Concomitant]
     Active Substance: FINGOLIMOD
     Indication: Product used for unknown indication
     Route: 065
  7. ASPIRIN [Concomitant]
     Active Substance: ASPIRIN
  8. ETHINYL ESTRADIOL\LEVONORGESTREL ACETATE [Concomitant]
     Active Substance: ETHINYL ESTRADIOL\LEVONORGESTREL ACETATE
     Indication: Contraception
  9. PREGABALIN [Concomitant]
     Active Substance: PREGABALIN
  10. CHOLECALCIFEROL [Concomitant]
     Active Substance: CHOLECALCIFEROL
  11. INFLUENZA VIRUS VACCINE [Concomitant]
     Active Substance: INFLUENZA VIRUS VACCINE
     Dates: start: 20201207
  12. MIRABEGRON [Concomitant]
     Active Substance: MIRABEGRON

REACTIONS (23)
  - Neuralgia [Recovered/Resolved]
  - Spinal pain [Recovered/Resolved]
  - Headache [Recovered/Resolved]
  - Fatigue [Not Recovered/Not Resolved]
  - Depression [Recovered/Resolved]
  - Nail bed inflammation [Recovered/Resolved]
  - Gingivitis [Recovered/Resolved]
  - Urinary tract infection [Recovered/Resolved]
  - Upper respiratory tract infection [Recovered/Resolved]
  - Infection susceptibility increased [Not Recovered/Not Resolved]
  - Body temperature increased [Recovered/Resolved]
  - Depressed mood [Recovered/Resolved]
  - Gingival bleeding [Not Recovered/Not Resolved]
  - Aphthous ulcer [Recovering/Resolving]
  - Angular cheilitis [Recovering/Resolving]
  - Pruritus [Recovering/Resolving]
  - Reaction to preservatives [Recovering/Resolving]
  - Skin exfoliation [Recovering/Resolving]
  - Pustule [Recovering/Resolving]
  - Paresis [Not Recovered/Not Resolved]
  - Nerve injury [Not Recovered/Not Resolved]
  - Nasopharyngitis [Recovered/Resolved]
  - COVID-19 [Not Recovered/Not Resolved]

NARRATIVE: CASE EVENT DATE: 20191014
